FAERS Safety Report 6929693-1 (Version None)
Quarter: 2010Q3

REPORT INFORMATION
  Report Type: 
  Country: None (occurrence: None)
  Receive Date: 20100813
  Receipt Date: 20100728
  Transmission Date: 20110219
  Serious: Yes (Hospitalization)
  Sender: FDA-Public Use
  Company Number: ACO_01664_2010

PATIENT
  Age: 72 Year
  Sex: Male

DRUGS (8)
  1. TIZANIDINE HCL [Suspect]
     Indication: SPASTIC PARALYSIS
     Dosage: DF ORAL
     Route: 048
     Dates: start: 20100721
  2. ASPIRIN [Concomitant]
  3. CRESTOR [Concomitant]
  4. MICARDIS [Concomitant]
  5. GASTER D [Concomitant]
  6. PLETAL [Concomitant]
  7. BASEN [Concomitant]
  8. ADALAT [Concomitant]

REACTIONS (3)
  - CEREBRAL INFARCTION [None]
  - DISEASE RECURRENCE [None]
  - THIRST [None]
